FAERS Safety Report 7276372-X (Version None)
Quarter: 2011Q1

REPORT INFORMATION
  Report Type: 
  Country: None (occurrence: None)
  Receive Date: 20110204
  Receipt Date: 20110128
  Transmission Date: 20110831
  Serious: Yes (Other)
  Sender: FDA-Public Use
  Company Number: US-SANOFI-AVENTIS-2010SA069804

PATIENT
  Age: 57 Year
  Sex: Female
  Weight: 132 kg

DRUGS (10)
  1. CYMBALTA [Concomitant]
     Dosage: DOSE:60 UNIT(S)
     Route: 065
  2. VICODIN [Concomitant]
     Route: 065
  3. ALL OTHER THERAPEUTIC PRODUCTS [Concomitant]
     Dosage: DOSE:450 UNIT(S)
     Route: 065
  4. APIDRA [Suspect]
     Indication: TYPE 2 DIABETES MELLITUS
     Dosage: 20-25 UNITS DOSE:25 UNIT(S)
     Route: 058
     Dates: start: 20090101
  5. IRON [Concomitant]
  6. WATER PILLS [Concomitant]
     Route: 065
  7. LISINOPRIL [Concomitant]
     Route: 065
  8. SOLOSTAR [Suspect]
     Dates: start: 20090101
  9. LANTUS [Concomitant]
     Dosage: DOSE:85 UNIT(S)
     Route: 058
  10. FLEXERIL [Concomitant]
     Route: 065

REACTIONS (2)
  - DERMAL CYST [None]
  - RENAL FAILURE CHRONIC [None]
